FAERS Safety Report 24969500 (Version 1)
Quarter: 2025Q1

REPORT INFORMATION
  Report Type: Spontaneous
  Country: CA (occurrence: CA)
  Receive Date: 20250214
  Receipt Date: 20250214
  Transmission Date: 20250409
  Serious: Yes (Death, Hospitalization, Other)
  Sender: CSL BEHRING
  Company Number: CA-BEH-2025195027

PATIENT
  Age: 65 Year
  Sex: Female
  Weight: 55 kg

DRUGS (5)
  1. HUMAN IMMUNOGLOBULIN G [Suspect]
     Active Substance: HUMAN IMMUNOGLOBULIN G
     Indication: Primary immunodeficiency syndrome
     Dosage: 6 G, QWSOLUTION FOR INFUSION
     Route: 065
  2. HUMAN IMMUNOGLOBULIN G [Suspect]
     Active Substance: HUMAN IMMUNOGLOBULIN G
     Route: 042
  3. HUMAN IMMUNOGLOBULIN G [Suspect]
     Active Substance: HUMAN IMMUNOGLOBULIN G
     Dosage: 6 G, QWSOLUTION FOR INFUSION
     Route: 058
  4. HUMAN IMMUNOGLOBULIN G [Suspect]
     Active Substance: HUMAN IMMUNOGLOBULIN G
     Dosage: 6 G, QW
     Route: 065
  5. NOREPINEPHRINE BITARTRATE [Concomitant]
     Active Substance: NOREPINEPHRINE BITARTRATE
     Indication: Product used for unknown indication
     Route: 065

REACTIONS (19)
  - Carbon dioxide increased [Fatal]
  - Death [Fatal]
  - Depressed mood [Fatal]
  - Diplegia [Fatal]
  - Haemoglobin decreased [Fatal]
  - Infusion site bruising [Fatal]
  - Infusion site mass [Fatal]
  - Infusion site swelling [Fatal]
  - Localised oedema [Fatal]
  - Metastases to liver [Fatal]
  - Nausea [Fatal]
  - Oedema [Fatal]
  - Oxygen saturation abnormal [Fatal]
  - Oedema peripheral [Fatal]
  - Pleural effusion [Fatal]
  - Pyrexia [Fatal]
  - Seizure [Fatal]
  - Septic shock [Fatal]
  - Off label use [Unknown]
